FAERS Safety Report 4543724-8 (Version None)
Quarter: 2004Q4

REPORT INFORMATION
  Report Type: 
  Country: None (occurrence: None)
  Receive Date: 20041229
  Receipt Date: 20041229
  Transmission Date: 20050328
  Serious: Yes (Hospitalization)
  Sender: FDA-Public Use
  Company Number: None

PATIENT
  Age: 76 Year
  Sex: Female
  Weight: 147.1 kg

DRUGS (2)
  1. HERCEPTIN [Suspect]
     Indication: BREAST CANCER METASTATIC
     Dosage: 465 NG Q3 WK-IV
     Route: 042
     Dates: start: 20041220
  2. NAVELBINE [Suspect]
     Indication: BREAST CANCER METASTATIC
     Dosage: 17 MG -WEEKLY -IV
     Route: 042

REACTIONS (7)
  - COUGH [None]
  - FAECAL INCONTINENCE [None]
  - LETHARGY [None]
  - NAUSEA [None]
  - PYREXIA [None]
  - URINARY INCONTINENCE [None]
  - VOMITING [None]
